FAERS Safety Report 20724984 (Version 1)
Quarter: 2022Q2

REPORT INFORMATION
  Report Type: Spontaneous
  Country: US (occurrence: None)
  Receive Date: 20220418
  Receipt Date: 20220418
  Transmission Date: 20220721
  Serious: Yes (Other)
  Sender: FDA-Public Use
  Company Number: None

PATIENT
  Age: 43 Year
  Sex: Male
  Weight: 72 kg

DRUGS (1)
  1. BUPRENORPHINE AND NALOXONE SUBLINGUAL FILM [Suspect]
     Active Substance: BUPRENORPHINE HYDROCHLORIDE\NALOXONE HYDROCHLORIDE
     Indication: Drug dependence
     Dosage: OTHER QUANTITY : 1 SUBLINGUAL FILM;?FREQUENCY : TWICE A DAY;?
     Route: 060
     Dates: start: 20170901, end: 20220418

REACTIONS (2)
  - Tooth loss [None]
  - Tooth extraction [None]

NARRATIVE: CASE EVENT DATE: 20220110
